FAERS Safety Report 6203637-2 (Version None)
Quarter: 2009Q2

REPORT INFORMATION
  Report Type: 
  Country: None (occurrence: None)
  Receive Date: 20090527
  Receipt Date: 20090514
  Transmission Date: 20091009
  Serious: Yes (Other)
  Sender: FDA-Public Use
  Company Number: GR-ELI_LILLY_AND_COMPANY-GR200905002810

PATIENT
  Sex: Female
  Weight: 113 kg

DRUGS (9)
  1. EXENATIDE [Suspect]
     Dosage: 5 UG, 2/D
     Route: 058
     Dates: start: 20081222
  2. GLICLAZIDE [Concomitant]
     Dates: start: 19970101
  3. METFORMIN HCL [Concomitant]
     Dates: start: 19970101
  4. ATORVASTATIN CALCIUM [Concomitant]
     Dates: start: 20020613
  5. ACETYLSALICYLIC ACID [Concomitant]
     Dates: start: 20060207
  6. OLMESARTAN [Concomitant]
     Dates: start: 20051027
  7. INDAPAMIDE [Concomitant]
     Dates: start: 20051027
  8. CITALOPRAM HYDROBROMIDE [Concomitant]
     Dates: start: 20050707
  9. LEVOTHYROXINE SODIUM [Concomitant]
     Dates: start: 19650101

REACTIONS (1)
  - BILIARY COLIC [None]
